FAERS Safety Report 6332674-2 (Version None)
Quarter: 2009Q3

REPORT INFORMATION
  Report Type: 
  Country: None (occurrence: None)
  Receive Date: 20090828
  Receipt Date: 20090820
  Transmission Date: 20100115
  Serious: Yes (Life-Threatening, Hospitalization)
  Sender: FDA-Public Use
  Company Number: GB-JNJFOC-20090503838

PATIENT
  Sex: Female

DRUGS (7)
  1. REMICADE [Suspect]
     Route: 042
  2. REMICADE [Suspect]
     Indication: CROHN'S DISEASE
     Dosage: 2 INFUSIONS, DATES NOT SPECIFIED
     Route: 042
  3. CODEINE PHOSPHATE [Concomitant]
     Indication: DIARRHOEA
  4. FERROUS SULFATE TAB [Concomitant]
  5. VITAMIN B-12 [Concomitant]
     Indication: VITAMIN B12 DEFICIENCY
  6. HYDROCORTISONE [Concomitant]
     Route: 042
  7. HYDROCORTISONE [Concomitant]
     Indication: PREMEDICATION
     Route: 042

REACTIONS (3)
  - ANAPHYLACTIC SHOCK [None]
  - ATRIAL FLUTTER [None]
  - INFUSION RELATED REACTION [None]
